FAERS Safety Report 9664676 (Version 1)
Quarter: 2013Q4

REPORT INFORMATION
  Report Type: Spontaneous
  Country: US (occurrence: None)
  Receive Date: 20131031
  Receipt Date: 20131031
  Transmission Date: 20140711
  Serious: Yes (Hospitalization)
  Sender: FDA-Public Use
  Company Number: None

PATIENT
  Age: 27 Year
  Sex: Female
  Weight: 70.31 kg

DRUGS (1)
  1. NITROFURANTOIN [Suspect]
     Indication: URINARY TRACT INFECTION
     Dosage: 100MG TWICE A DAY TAKEN BY MOUTH
     Dates: start: 20130811, end: 20131118

REACTIONS (6)
  - Fatigue [None]
  - Decreased appetite [None]
  - Lymphadenopathy [None]
  - Hepatosplenomegaly [None]
  - Infectious mononucleosis [None]
  - Autoimmune hepatitis [None]
